FAERS Safety Report 7166160-7 (Version None)
Quarter: 2010Q4

REPORT INFORMATION
  Report Type: 
  Country: None (occurrence: None)
  Receive Date: 20101216
  Receipt Date: 20101202
  Transmission Date: 20110411
  Serious: Yes (Other)
  Sender: FDA-Public Use
  Company Number: PL-RANBAXY-2010R1-40202

PATIENT
  Age: 60 Year
  Sex: Female

DRUGS (1)
  1. LORATADINE [Suspect]
     Indication: PRURITUS
     Dosage: 10 MG, QD
     Route: 048

REACTIONS (7)
  - ALANINE AMINOTRANSFERASE INCREASED [None]
  - CHILLS [None]
  - DYSPNOEA [None]
  - MALAISE [None]
  - SKIN DISCOLOURATION [None]
  - SKIN EXFOLIATION [None]
  - URTICARIA [None]
